FAERS Safety Report 21225771 (Version 1)
Quarter: 2022Q3

REPORT INFORMATION
  Report Type: Spontaneous
  Country: US (occurrence: US)
  Receive Date: 20220818
  Receipt Date: 20220818
  Transmission Date: 20221027
  Serious: No
  Sender: FDA-Public Use
  Company Number: US-STRIDES ARCOLAB LIMITED-2022SP000400

PATIENT
  Age: 33 Year
  Sex: Female

DRUGS (5)
  1. PROMETHAZINE HYDROCHLORIDE [Suspect]
     Active Substance: PROMETHAZINE HYDROCHLORIDE
     Indication: Cannabinoid hyperemesis syndrome
     Dosage: 25 MILLIGRAM
     Route: 048
  2. ONDANSETRON [Suspect]
     Active Substance: ONDANSETRON
     Indication: Cannabinoid hyperemesis syndrome
     Dosage: 4 MILLIGRAM
     Route: 065
  3. KETOROLAC [Suspect]
     Active Substance: KETOROLAC TROMETHAMINE
     Indication: Cannabinoid hyperemesis syndrome
     Dosage: 30 MILLIGRAM
     Route: 042
  4. MORPHINE [Suspect]
     Active Substance: MORPHINE
     Indication: Cannabinoid hyperemesis syndrome
     Dosage: 4 MILLIGRAM
     Route: 042
  5. ARIPIPRAZOLE [Concomitant]
     Active Substance: ARIPIPRAZOLE
     Indication: Schizophrenia
     Dosage: UNK, ONCE A MONTH
     Route: 065

REACTIONS (1)
  - Drug ineffective for unapproved indication [Unknown]
